FAERS Safety Report 7135733-X (Version None)
Quarter: 2010Q4

REPORT INFORMATION
  Report Type: 
  Country: None (occurrence: None)
  Receive Date: 20101203
  Receipt Date: 20101118
  Transmission Date: 20110411
  Serious: Yes (Hospitalization)
  Sender: FDA-Public Use
  Company Number: US-ELI_LILLY_AND_COMPANY-US201001004269

PATIENT
  Sex: Female

DRUGS (7)
  1. FORTEO [Suspect]
     Indication: OSTEOPOROSIS
     Dosage: 20 UG, DAILY (1/D)
     Dates: start: 20090901, end: 20100112
  2. EVISTA [Suspect]
     Dosage: 60 MG, DAILY (1/D)
  3. PRIMIDONE [Concomitant]
     Indication: TREMOR
  4. NEXIUM [Concomitant]
  5. CELEXA [Concomitant]
  6. THYROID [Concomitant]
  7. ANALGESICS [Concomitant]
     Indication: PAIN

REACTIONS (2)
  - BACK PAIN [None]
  - SPINAL LAMINECTOMY [None]
